FAERS Safety Report 25686384 (Version 1)
Quarter: 2025Q3

REPORT INFORMATION
  Report Type: Spontaneous
  Country: EU (occurrence: EU)
  Receive Date: 20250815
  Receipt Date: 20250815
  Transmission Date: 20251020
  Serious: Yes (Hospitalization, Other)
  Sender: PFIZER
  Company Number: EU-PFIZER INC-PV202500097334

PATIENT
  Age: 19 Year
  Sex: Female

DRUGS (6)
  1. EPIRUBICIN HYDROCHLORIDE [Suspect]
     Active Substance: EPIRUBICIN HYDROCHLORIDE
     Indication: Small cell carcinoma
  2. HYCAMTIN [Suspect]
     Active Substance: TOPOTECAN HYDROCHLORIDE
     Indication: Small cell carcinoma
  3. TAXOL [Concomitant]
     Active Substance: PACLITAXEL
     Indication: Small cell carcinoma
  4. ELOXATIN [Concomitant]
     Active Substance: OXALIPLATIN
     Indication: Small cell carcinoma
  5. AREDIA [Concomitant]
     Active Substance: PAMIDRONATE DISODIUM
     Indication: Small cell carcinoma
  6. NAVELBINE [Concomitant]
     Active Substance: VINORELBINE TARTRATE
     Indication: Small cell carcinoma

REACTIONS (1)
  - Aplastic anaemia [Unknown]
